FAERS Safety Report 10749629 (Version 1)
Quarter: 2015Q1

REPORT INFORMATION
  Report Type: Spontaneous
  Country: TR (occurrence: TR)
  Receive Date: 20150129
  Receipt Date: 20150129
  Transmission Date: 20150721
  Serious: Yes (Hospitalization)
  Sender: FDA-Public Use
  Company Number: TR-MYLANLABS-2015M1002121

PATIENT

DRUGS (1)
  1. AMLODIPINE BESILATE [Suspect]
     Active Substance: AMLODIPINE BESYLATE
     Dosage: 1MG/KG
     Route: 048

REACTIONS (3)
  - Hypocalcaemia [Recovering/Resolving]
  - Toxicity to various agents [Recovering/Resolving]
  - Hypotension [Recovering/Resolving]
